FAERS Safety Report 17720049 (Version 1)
Quarter: 2020Q2

REPORT INFORMATION
  Report Type: Spontaneous
  Country: CA (occurrence: CA)
  Receive Date: 20200428
  Receipt Date: 20200428
  Transmission Date: 20200714
  Serious: Yes (Other)
  Sender: FDA-Public Use
  Company Number: CA-009507513-2004CAN007300

PATIENT
  Sex: Female

DRUGS (2)
  1. PREVYMIS [Suspect]
     Active Substance: LETERMOVIR
     Indication: CYTOMEGALOVIRUS INFECTION
     Dosage: UNK
     Route: 048
  2. PREVYMIS [Suspect]
     Active Substance: LETERMOVIR
     Dosage: ROUTE: ORAL GASTRIC TUBE
     Route: 050
     Dates: start: 202004

REACTIONS (2)
  - Incorrect route of product administration [Unknown]
  - Gastrointestinal tube insertion [Unknown]

NARRATIVE: CASE EVENT DATE: 202004
